FAERS Safety Report 14927265 (Version 5)
Quarter: 2019Q4

REPORT INFORMATION
  Report Type: Spontaneous
  Country: US (occurrence: US)
  Receive Date: 20180523
  Receipt Date: 20191002
  Transmission Date: 20200122
  Serious: No
  Sender: FDA-Public Use
  Company Number: US-PFIZER INC-2018207187

PATIENT
  Age: 75 Year
  Sex: Female

DRUGS (3)
  1. IBRANCE [Suspect]
     Active Substance: PALBOCICLIB
     Indication: BREAST CANCER METASTATIC
     Dosage: 125 MG, CYCLIC [21 DAYS ON AND 7 DAYS OFF]
     Route: 048
     Dates: start: 201604
  2. IBRANCE [Suspect]
     Active Substance: PALBOCICLIB
     Dosage: 100 MG, DAILY (1-21DAYS)
     Route: 048
     Dates: start: 201810
  3. IBRANCE [Suspect]
     Active Substance: PALBOCICLIB
     Dosage: 100 MG, CYCLIC[21 DAYS ON AND 7 DAYS]
     Route: 048

REACTIONS (4)
  - White blood cell count decreased [Unknown]
  - Incorrect dose administered [Recovered/Resolved]
  - Neoplasm progression [Unknown]
  - Product dispensing error [Unknown]

NARRATIVE: CASE EVENT DATE: 201902
